FAERS Safety Report 13120306 (Version 1)
Quarter: 2017Q1

REPORT INFORMATION
  Report Type: Spontaneous
  Country: US (occurrence: US)
  Receive Date: 20170117
  Receipt Date: 20170117
  Transmission Date: 20170428
  Serious: Yes (Death, Other)
  Sender: FDA-Public Use
  Company Number: US-APOTEX-2017AP005199

PATIENT
  Age: 29 Year
  Sex: Male

DRUGS (1)
  1. DIVALPROEX SODIUM DELAYED-RELEASE TABLETS USP [Suspect]
     Active Substance: DIVALPROEX SODIUM
     Indication: PRODUCT USED FOR UNKNOWN INDICATION
     Dosage: 90 TABLETS
     Route: 048

REACTIONS (5)
  - Brain oedema [Fatal]
  - Hyperammonaemia [Fatal]
  - Toxicity to various agents [Fatal]
  - Completed suicide [Fatal]
  - Cerebral haemorrhage [Fatal]
